FAERS Safety Report 15317931 (Version 1)
Quarter: 2018Q3

REPORT INFORMATION
  Report Type: Spontaneous
  Country: US (occurrence: US)
  Receive Date: 20180817
  Receipt Date: 20180817
  Transmission Date: 20181010
  Serious: No
  Sender: FDA-Public Use
  Company Number: None

PATIENT
  Age: 30 Year
  Sex: Female
  Weight: 60.3 kg

DRUGS (1)
  1. PHENAZOPYRIDINE. [Suspect]
     Active Substance: PHENAZOPYRIDINE
     Indication: URINARY TRACT INFECTION
     Dosage: ?          QUANTITY:9 TABLET(S);?
     Route: 048
     Dates: start: 20180814, end: 20180816

REACTIONS (7)
  - Headache [None]
  - Eye movement disorder [None]
  - Pallor [None]
  - Vision blurred [None]
  - Dizziness [None]
  - Dyspnoea [None]
  - Asthenia [None]

NARRATIVE: CASE EVENT DATE: 20180815
